FAERS Safety Report 8565329-4 (Version None)
Quarter: 2012Q3

REPORT INFORMATION
  Report Type: 
  Country: None (occurrence: None)
  Receive Date: 20120723
  Receipt Date: 20120706
  Transmission Date: 20120928
  Serious: Yes (Other)
  Sender: FDA-Public Use
  Company Number: 2011US-49987

PATIENT
  Age: 28 Year
  Sex: Male

DRUGS (7)
  1. URSODIOL [Concomitant]
  2. CEFAZOLIN (CEFAZOLIN) [Concomitant]
  3. CIPROFLAXACIN [Suspect]
     Indication: PRODUCT USED FOR UNKNOWN INDICATION
     Dosage: 400 MG, BID, INTRAVENOUS
     Route: 042
  4. CIPROFLOXACIN [Suspect]
     Indication: PRODUCT USED FOR UNKNOWN INDICATION
     Dosage: 500 MG, BID, ORAL
     Route: 048
  5. GRAVOL (GRAVOL) [Concomitant]
  6. METRONIDAZOLE [Concomitant]
  7. SULFASALAZINE [Concomitant]

REACTIONS (8)
  - AGGRESSION [None]
  - GRANDIOSITY [None]
  - DELUSION [None]
  - AFFECTIVE DISORDER [None]
  - BIPOLAR I DISORDER [None]
  - MANIA [None]
  - IRRITABILITY [None]
  - AGITATION [None]
